FAERS Safety Report 10027800 (Version 1)
Quarter: 2014Q1

REPORT INFORMATION
  Report Type: Spontaneous
  Country: SA (occurrence: SA)
  Receive Date: 20140321
  Receipt Date: 20140321
  Transmission Date: 20141002
  Serious: Yes (Hospitalization, Other)
  Sender: FDA-Public Use
  Company Number: SA-009507513-1403SAU006860

PATIENT
  Age: 48 Year
  Sex: Male

DRUGS (6)
  1. FOSAMAX [Suspect]
     Indication: OSTEOPOROSIS
     Dosage: 70 MG, QW
     Route: 048
     Dates: start: 2003
  2. FOSAMAX [Suspect]
     Indication: OSTEOGENESIS IMPERFECTA
  3. ALFACALCIDOL [Concomitant]
     Indication: OSTEOPOROSIS
     Dosage: 1 MICROGRAM, QD
     Dates: start: 2003
  4. ALFACALCIDOL [Concomitant]
     Indication: OSTEOGENESIS IMPERFECTA
  5. CALCIUM CARBONATE [Concomitant]
     Indication: OSTEOPOROSIS
     Dosage: 600 MG, BID
     Dates: start: 2003
  6. CALCIUM CARBONATE [Concomitant]
     Indication: OSTEOGENESIS IMPERFECTA

REACTIONS (7)
  - Jaw fracture [Recovered/Resolved]
  - Open reduction of fracture [Unknown]
  - Internal fixation of fracture [Unknown]
  - Surgical failure [Unknown]
  - Jaw fracture [Recovered/Resolved]
  - Open reduction of fracture [Unknown]
  - Internal fixation of fracture [Unknown]
